FAERS Safety Report 22988795 (Version 3)
Quarter: 2023Q4

REPORT INFORMATION
  Report Type: Report from Study
  Country: US (occurrence: US)
  Receive Date: 20230926
  Receipt Date: 20231017
  Transmission Date: 20240109
  Serious: Yes (Other)
  Sender: FDA-Public Use
  Company Number: US-ABBVIE-5422478

PATIENT
  Sex: Female

DRUGS (1)
  1. BOTOX [Suspect]
     Active Substance: ONABOTULINUMTOXINA
     Indication: Migraine
     Dosage: TIME INTERVAL: AS NECESSARY: 200 UNITS/90 DAYS
     Route: 065

REACTIONS (6)
  - Systemic lupus erythematosus [Not Recovered/Not Resolved]
  - Diabetes mellitus [Not Recovered/Not Resolved]
  - Eye inflammation [Not Recovered/Not Resolved]
  - Blindness [Not Recovered/Not Resolved]
  - Rheumatoid arthritis [Unknown]
  - Hashimoto^s encephalopathy [Unknown]
